FAERS Safety Report 7282300 (Version 2)
Quarter: 2014Q1

REPORT INFORMATION
  Report Type: Spontaneous
  Country: US (occurrence: US)
  Receive Date: 20100217
  Receipt Date: 20140205
  Transmission Date: 20141002
  Serious: No
  Sender: FDA-Public Use
  Company Number: US-ALLERGAN-0903820US

PATIENT
  Age: 68 Year
  Sex: Female

DRUGS (5)
  1. BOTOX [Suspect]
     Indication: BLEPHAROSPASM
     Dosage: UNK, SINGLE
     Route: 030
     Dates: start: 20090304, end: 20090304
  2. BOTOX [Suspect]
     Indication: MEIGS^ SYNDROME
     Dosage: UNK
     Dates: start: 20130215, end: 20130215
  3. BOTOX [Suspect]
     Dosage: UNK
     Dates: start: 20130515, end: 20130515
  4. ARTANE [Concomitant]
     Indication: PRODUCT USED FOR UNKNOWN INDICATION
     Dosage: UNK
  5. LORAZEPAM [Concomitant]
     Dosage: UNK

REACTIONS (5)
  - Eyelid ptosis [Not Recovered/Not Resolved]
  - Facial paresis [Not Recovered/Not Resolved]
  - Eyelid ptosis [Recovered/Resolved]
  - Eyelid ptosis [Not Recovered/Not Resolved]
  - Eyelid ptosis [Not Recovered/Not Resolved]
